FAERS Safety Report 9319704 (Version 1)
Quarter: 2013Q2

REPORT INFORMATION
  Report Type: Spontaneous
  Country: US (occurrence: None)
  Receive Date: 20130529
  Receipt Date: 20130529
  Transmission Date: 20140414
  Serious: Yes (Other)
  Sender: FDA-Public Use
  Company Number: None

PATIENT
  Age: 19 Year
  Sex: Female
  Weight: 55.34 kg

DRUGS (1)
  1. NEXPLANON [Suspect]
     Indication: CONTRACEPTION
     Dosage: 68 MG, OVER 3 YEARS, SQ
     Route: 058
     Dates: start: 20130508, end: 20130528

REACTIONS (8)
  - Implant site bruising [None]
  - Pruritus [None]
  - Swelling [None]
  - Erythema [None]
  - Implant site infection [None]
  - Implant site reaction [None]
  - Product quality issue [None]
  - Product contamination physical [None]
